FAERS Safety Report 12823097 (Version 1)
Quarter: 2016Q4

REPORT INFORMATION
  Report Type: Report from Study
  Country: US (occurrence: US)
  Receive Date: 20161006
  Receipt Date: 20161006
  Transmission Date: 20170207
  Serious: No
  Sender: FDA-Public Use
  Company Number: US-AMGEN-USASP2016099683

PATIENT
  Age: 58 Year
  Sex: Female

DRUGS (1)
  1. PROLIA [Suspect]
     Active Substance: DENOSUMAB
     Indication: OSTEOPOROSIS
     Dosage: UNK
     Route: 065
     Dates: start: 201602

REACTIONS (10)
  - Pruritus generalised [Unknown]
  - Skin exfoliation [Unknown]
  - Abdominal pain upper [Unknown]
  - Helicobacter test positive [Unknown]
  - Unevaluable event [Unknown]
  - Ulcer [Unknown]
  - Ear pruritus [Unknown]
  - Gastrooesophageal reflux disease [Unknown]
  - Nausea [Unknown]
  - Otorrhoea [Unknown]
